FAERS Safety Report 13526976 (Version 3)
Quarter: 2017Q4

REPORT INFORMATION
  Report Type: Report from Study
  Country: KR (occurrence: KR)
  Receive Date: 20170509
  Receipt Date: 20171218
  Transmission Date: 20180320
  Serious: Yes (Hospitalization)
  Sender: FDA-Public Use
  Company Number: KR-PFIZER INC-2017195254

PATIENT
  Age: 54 Year
  Sex: Female
  Weight: 44 kg

DRUGS (5)
  1. CRIZOTINIB [Suspect]
     Active Substance: CRIZOTINIB
     Indication: NON-SMALL CELL LUNG CANCER
     Dosage: 250 MG, 2X/DAY
     Route: 048
     Dates: start: 20170419, end: 20170501
  2. ACETAMINOPHEN. [Concomitant]
     Active Substance: ACETAMINOPHEN
     Indication: PYREXIA
     Dosage: 650 MG, AS NEEDED
     Route: 048
     Dates: start: 20170426, end: 20170501
  3. GRANISETRON [Concomitant]
     Active Substance: GRANISETRON
     Indication: VOMITING
     Dosage: 1 MG, 1X/DAY
     Route: 048
     Dates: start: 20170426, end: 20170428
  4. COUGH SYRUP /00872901/ [Concomitant]
     Indication: PRODUCTIVE COUGH
     Dosage: 20 ML, 3X/DAY
     Route: 048
     Dates: start: 20170426, end: 20170502
  5. AVELUMAB [Suspect]
     Active Substance: AVELUMAB
     Indication: NON-SMALL CELL LUNG CANCER
     Dosage: 443 MG, CYCLIC (EVERY 2 WEEKS)
     Route: 041
     Dates: start: 20170419, end: 20170419

REACTIONS (2)
  - Febrile neutropenia [Recovered/Resolved]
  - Rash [Recovered/Resolved]

NARRATIVE: CASE EVENT DATE: 20170502
